FAERS Safety Report 6540067-8 (Version None)
Quarter: 2010Q1

REPORT INFORMATION
  Report Type: 
  Country: None (occurrence: None)
  Receive Date: 20100115
  Receipt Date: 20100104
  Transmission Date: 20100710
  Serious: Yes (Death)
  Sender: FDA-Public Use
  Company Number: US-PFIZER INC-2010000981

PATIENT
  Age: 50 Year
  Sex: Female

DRUGS (6)
  1. GABAPENTIN [Suspect]
     Route: 048
  2. HYDROXYZINE PAMOATE [Suspect]
     Route: 048
  3. ACETAMINOPHEN AND HYDROCODONE BITARTRATE [Suspect]
     Route: 048
  4. PARACETAMOL [Suspect]
     Route: 048
  5. LORAZEPAM [Suspect]
     Route: 048
  6. HYOSCYAMINE [Suspect]
     Route: 048

REACTIONS (1)
  - COMPLETED SUICIDE [None]
